FAERS Safety Report 14126060 (Version 1)
Quarter: 2017Q4

REPORT INFORMATION
  Report Type: Spontaneous
  Country: US (occurrence: US)
  Receive Date: 20171025
  Receipt Date: 20171025
  Transmission Date: 20180321
  Serious: No
  Sender: FDA-Public Use
  Company Number: US-009507513-1710USA011726

PATIENT
  Age: 32 Year
  Sex: Female
  Weight: 80.73 kg

DRUGS (2)
  1. NEXPLANON [Suspect]
     Active Substance: ETONOGESTREL
     Indication: CONTRACEPTION
     Dosage: 3 YEAR IMPLANT; IMPLANT IN LEFT ARM (THERAPY START DATE: BETWEEN JULY 15TH AND AUGUST)
     Route: 059
     Dates: start: 20160715
  2. TRAMADOL HYDROCHLORIDE. [Concomitant]
     Active Substance: TRAMADOL HYDROCHLORIDE

REACTIONS (4)
  - Anxiety [Unknown]
  - Metrorrhagia [Unknown]
  - Insomnia [Unknown]
  - Emotional disorder [Unknown]

NARRATIVE: CASE EVENT DATE: 2017
